FAERS Safety Report 18055181 (Version 1)
Quarter: 2020Q3

REPORT INFORMATION
  Report Type: Spontaneous
  Country: US (occurrence: US)
  Receive Date: 20200722
  Receipt Date: 20200722
  Transmission Date: 20201103
  Serious: Yes (Hospitalization, Other)
  Sender: FDA-Public Use
  Company Number: None

PATIENT
  Age: 46 Year
  Sex: Female

DRUGS (19)
  1. REPATHA [Suspect]
     Active Substance: EVOLOCUMAB
     Indication: HYPERLIPIDAEMIA
     Dosage: ?          OTHER FREQUENCY:EVERY 2 WEEKS;?
     Route: 058
     Dates: start: 20200313
  2. LAMOTRIGINE. [Concomitant]
     Active Substance: LAMOTRIGINE
  3. OXYCODONE [Concomitant]
     Active Substance: OXYCODONE
  4. ELIQUIS [Concomitant]
     Active Substance: APIXABAN
  5. BELSOMRA [Concomitant]
     Active Substance: SUVOREXANT
  6. PREGABALIN. [Concomitant]
     Active Substance: PREGABALIN
  7. EMGALITY [Concomitant]
     Active Substance: GALCANEZUMAB-GNLM
  8. DEMEROL [Concomitant]
     Active Substance: MEPERIDINE HYDROCHLORIDE
  9. ZOLPIDEM [Concomitant]
     Active Substance: ZOLPIDEM TARTRATE
  10. DICLOFENAC [Concomitant]
     Active Substance: DICLOFENAC
  11. PROPRANOLOL [Concomitant]
     Active Substance: PROPRANOLOL HYDROCHLORIDE
  12. ALPRAZOLAM. [Concomitant]
     Active Substance: ALPRAZOLAM
  13. PHENTERMINE. [Concomitant]
     Active Substance: PHENTERMINE
  14. DEMEROL [Suspect]
     Active Substance: MEPERIDINE HYDROCHLORIDE
  15. CETIRIZINE [Concomitant]
     Active Substance: CETIRIZINE HYDROCHLORIDE
  16. VITAMIN B12 [Concomitant]
     Active Substance: CYANOCOBALAMIN
  17. ESTRADIOL. [Concomitant]
     Active Substance: ESTRADIOL
  18. AZITHROMYCIN ANHYDROUS. [Concomitant]
     Active Substance: AZITHROMYCIN ANHYDROUS
  19. FLUCONAZOLE. [Concomitant]
     Active Substance: FLUCONAZOLE

REACTIONS (1)
  - Knee operation [None]

NARRATIVE: CASE EVENT DATE: 20200716
